FAERS Safety Report 7269469-1 (Version None)
Quarter: 2011Q1

REPORT INFORMATION
  Report Type: 
  Country: None (occurrence: None)
  Receive Date: 20110202
  Receipt Date: 20100928
  Transmission Date: 20110831
  Serious: Yes (Other)
  Sender: FDA-Public Use
  Company Number: US-BAYER-201033774NA

PATIENT
  Sex: Female

DRUGS (14)
  1. B-COMPLEX [VITAMIN B NOS] [Concomitant]
  2. UNCODEABLE ^UNCLASSIFIABLE^ [Concomitant]
  3. OCELLA [Suspect]
     Indication: PRODUCT USED FOR UNKNOWN INDICATION
     Dosage: UNK
     Route: 048
     Dates: start: 20040101, end: 20090101
  4. ALLEGRA [Concomitant]
  5. MULTI-VITAMIN [Concomitant]
  6. FEXOFENADINE HCL [Concomitant]
     Dosage: 180 MG, UNK
  7. UNCODEABLE ^UNCLASSIFIABLE^ [Concomitant]
  8. YASMIN [Suspect]
     Indication: PRODUCT USED FOR UNKNOWN INDICATION
     Dosage: UNK
     Route: 048
     Dates: start: 20040101, end: 20090101
  9. NEXIUM [Concomitant]
     Dosage: UNK
     Dates: start: 20030101
  10. UNCODEABLE ^UNCLASSIFIABLE^ [Concomitant]
  11. YAZ [Suspect]
     Indication: PRODUCT USED FOR UNKNOWN INDICATION
     Dosage: UNK
     Route: 048
     Dates: start: 20040101, end: 20090101
  12. LEVOXYL [Concomitant]
     Indication: HYPOTHYROIDISM
     Dosage: UNK
     Dates: start: 20020101
  13. AZMACORT [Concomitant]
  14. NASONEX [Concomitant]

REACTIONS (6)
  - BILIARY COLIC [None]
  - INJURY [None]
  - PAIN [None]
  - GALLBLADDER CHOLESTEROLOSIS [None]
  - CHOLECYSTITIS CHRONIC [None]
  - CHOLELITHIASIS [None]
